FAERS Safety Report 8290392-8 (Version None)
Quarter: 2012Q2

REPORT INFORMATION
  Report Type: 
  Country: None (occurrence: None)
  Receive Date: 20120413
  Receipt Date: 20120413
  Transmission Date: 20120825
  Serious: No
  Sender: FDA-Public Use
  Company Number: None

PATIENT
  Sex: Male

DRUGS (2)
  1. LAMOTRIGINE [Suspect]
     Dosage: LAMOTRIGINE 150 MG 2X PO
     Route: 048
  2. TOPIRAMATE [Suspect]
     Indication: AFFECTIVE DISORDER
     Dosage: TOPIRAMATE 150 MG 2X PO
     Route: 048
     Dates: end: 20120323

REACTIONS (3)
  - MEDICATION ERROR [None]
  - DRUG DISPENSING ERROR [None]
  - DIZZINESS POSTURAL [None]
